FAERS Safety Report 9088566 (Version 1)
Quarter: 2013Q1

REPORT INFORMATION
  Report Type: Report from Study
  Country: US (occurrence: US)
  Receive Date: 20130131
  Receipt Date: 20130131
  Transmission Date: 20140127
  Serious: Yes (Hospitalization)
  Sender: FDA-Public Use
  Company Number: US-ABBOTT-12P-163-0989099-00

PATIENT
  Age: 46 Year
  Sex: Female
  Weight: 83.08 kg

DRUGS (1)
  1. HUMIRA [Suspect]
     Indication: PSORIASIS
     Dates: start: 20120730

REACTIONS (2)
  - Cervical vertebral fracture [Recovering/Resolving]
  - Fall [Recovering/Resolving]
